FAERS Safety Report 5432754-X (Version None)
Quarter: 2007Q3

REPORT INFORMATION
  Report Type: 
  Country: None (occurrence: None)
  Receive Date: 20070831
  Receipt Date: 20070824
  Transmission Date: 20080115
  Serious: Yes (Other)
  Sender: FDA-Public Use
  Company Number: ES-JNJFOC-20070805198

PATIENT
  Age: 29 Year
  Sex: Female

DRUGS (5)
  1. ACETAMINOPHEN [Suspect]
     Dosage: 3-DAY CHALLENGE: DAY 1: PLACEBO, DAY-2: 250 AND 500 MG, DAY-3: 1 G
  2. ACETAMINOPHEN [Suspect]
     Indication: DRUG USE FOR UNKNOWN INDICATION
     Dosage: UNKNOWN
  3. IBUPROFEN [Suspect]
     Indication: DRUG USE FOR UNKNOWN INDICATION
     Dosage: UNKNOWN
  4. KETOROLAC TROMETAMOL [Suspect]
     Indication: DRUG USE FOR UNKNOWN INDICATION
     Dosage: UNKNOWN
  5. DIPYRONE TAB [Suspect]
     Indication: DRUG USE FOR UNKNOWN INDICATION
     Dosage: UNKNOWN

REACTIONS (2)
  - ANALGESIC ASTHMA SYNDROME [None]
  - BRONCHOSPASM [None]
